FAERS Safety Report 5654823-1 (Version None)
Quarter: 2008Q1

REPORT INFORMATION
  Report Type: 
  Country: None (occurrence: None)
  Receive Date: 20080307
  Receipt Date: 20070731
  Transmission Date: 20080703
  Serious: No
  Sender: FDA-Public Use
  Company Number: A0667337A

PATIENT
  Age: 64 Year
  Sex: Male

DRUGS (7)
  1. REQUIP [Suspect]
     Indication: PARKINSON'S DISEASE
     Dosage: 1MG THREE TIMES PER DAY
     Route: 048
  2. RANITIDINE [Suspect]
     Indication: DRUG USE FOR UNKNOWN INDICATION
     Route: 065
  3. BISOPROLOL FUMARATE [Concomitant]
  4. CLOPIDOGREL [Concomitant]
  5. TRANDOLAPRIL [Concomitant]
  6. LORAZEPAM [Concomitant]
  7. MAVIK [Concomitant]

REACTIONS (6)
  - DIZZINESS [None]
  - HEART RATE IRREGULAR [None]
  - HYPERHIDROSIS [None]
  - NAUSEA [None]
  - STOMACH DISCOMFORT [None]
  - WITHDRAWAL SYNDROME [None]
